FAERS Safety Report 14944154 (Version 5)
Quarter: 2018Q4

REPORT INFORMATION
  Report Type: Spontaneous
  Country: PL (occurrence: PL)
  Receive Date: 20180528
  Receipt Date: 20181205
  Transmission Date: 20190204
  Serious: Yes (Other)
  Sender: FDA-Public Use
  Company Number: PHHY2018PL006333

PATIENT
  Age: 57 Year
  Sex: Male
  Weight: 86 kg

DRUGS (18)
  1. TRAZODONE HYDROCHLORIDE. [Concomitant]
     Active Substance: TRAZODONE HYDROCHLORIDE
     Indication: PRODUCT USED FOR UNKNOWN INDICATION
     Dosage: 75 MG, QD (THREE HOURS BEFORE PLANNED BEDTIME)
     Route: 065
  2. FLUOXETINE [Interacting]
     Active Substance: FLUOXETINE HYDROCHLORIDE
     Indication: SLEEP DISORDER
     Dosage: 40 MG, UNK (2 X 20 MG IN THE MORNING AND IN THE EVENING)
     Route: 065
  3. BISOCARD [Concomitant]
     Active Substance: BISOPROLOL
     Indication: PRODUCT USED FOR UNKNOWN INDICATION
     Dosage: UNK
     Route: 065
  4. MIANSERIN [Interacting]
     Active Substance: MIANSERIN
     Indication: NIGHTMARE
     Dosage: 20 MG, QD (HALF AN HOUR BEFORE BED)
     Route: 065
  5. METFORMIN [Concomitant]
     Active Substance: METFORMIN HYDROCHLORIDE
     Indication: TYPE 2 DIABETES MELLITUS
  6. ZOLPIDEM [Suspect]
     Active Substance: ZOLPIDEM\ZOLPIDEM TARTRATE
     Indication: SLEEP DISORDER
     Dosage: 10 MG (USED BEFORE GOING SLEEP)
     Route: 065
  7. DIAZEPAM. [Suspect]
     Active Substance: DIAZEPAM
     Indication: INSOMNIA
  8. FLUOXETINE [Interacting]
     Active Substance: FLUOXETINE HYDROCHLORIDE
     Indication: FIBROMYALGIA
  9. TRAZODONE HYDROCHLORIDE. [Concomitant]
     Active Substance: TRAZODONE HYDROCHLORIDE
     Dosage: 100 MG, UNK THREE HOURS BEFORE BED
     Route: 065
  10. ZOLPIDEM [Interacting]
     Active Substance: ZOLPIDEM\ZOLPIDEM TARTRATE
     Indication: INSOMNIA
     Dosage: 10 MG (10 DAYS)
     Route: 065
     Dates: start: 20171122, end: 20171124
  11. MIANSERIN [Interacting]
     Active Substance: MIANSERIN
     Indication: INSOMNIA
  12. FLUOXETINE [Interacting]
     Active Substance: FLUOXETINE HYDROCHLORIDE
     Indication: INSOMNIA
  13. METFORMIN [Concomitant]
     Active Substance: METFORMIN HYDROCHLORIDE
     Indication: INSOMNIA
     Dosage: UNK
     Route: 065
  14. DULOXETINE HYDROCHLORIDE. [Concomitant]
     Active Substance: DULOXETINE HYDROCHLORIDE
     Indication: PAIN MANAGEMENT
     Dosage: 30 MG (IN MORNING)
     Route: 065
  15. DIAZEPAM. [Suspect]
     Active Substance: DIAZEPAM
     Indication: INITIAL INSOMNIA
     Dosage: 10 MG, QD (BEFORE BED)
     Route: 065
  16. DIAZEPAM. [Suspect]
     Active Substance: DIAZEPAM
     Indication: NIGHTMARE
  17. METFORMIN [Concomitant]
     Active Substance: METFORMIN HYDROCHLORIDE
     Indication: BLOOD GLUCOSE FLUCTUATION
  18. PARACETAMOL [Concomitant]
     Active Substance: ACETAMINOPHEN
     Indication: PRODUCT USED FOR UNKNOWN INDICATION
     Dosage: UNK
     Route: 065

REACTIONS (10)
  - Poor quality sleep [Recovered/Resolved]
  - Drug interaction [Unknown]
  - Off label use [Recovered/Resolved]
  - Sleep disorder [Recovered/Resolved]
  - Abnormal dreams [Recovered/Resolved]
  - Blood glucose fluctuation [Recovered/Resolved]
  - Dry mouth [Recovering/Resolving]
  - Initial insomnia [Recovered/Resolved]
  - Nightmare [Recovered/Resolved]
  - Somnolence [Recovered/Resolved]
